FAERS Safety Report 8196991-6 (Version None)
Quarter: 2012Q1

REPORT INFORMATION
  Report Type: 
  Country: None (occurrence: None)
  Receive Date: 20120227
  Receipt Date: 20111116
  Transmission Date: 20120608
  Serious: Yes (Hospitalization)
  Sender: FDA-Public Use
  Company Number: 336533

PATIENT
  Age: 42 Year
  Sex: Male
  Weight: 106.6 kg

DRUGS (17)
  1. LEVEMIR [Suspect]
     Indication: TYPE 2 DIABETES MELLITUS
     Dosage: 50 U BID, SUBCUTANEOUS 55 U EVERY MORNING, QD, SUBCUTANEOUS
     Route: 058
  2. CHLORDIAZEPOXIDE [Concomitant]
  3. COREG [Concomitant]
  4. RANITIDINE HCL (RANITIDINE HYDROCHLORIDE) [Concomitant]
  5. PERCOCET [Concomitant]
  6. NOVOLOG [Suspect]
     Indication: TYPE 2 DIABETES MELLITUS
     Dosage: 1 U, SLIDING SCALE 2 UNITS FOR EVERY 15 GM CARBOHYDRATE, SUBCUTANEOUS
     Route: 058
  7. VICTOZA [Suspect]
     Indication: TYPE 2 DIABETES MELLITUS
     Dosage: 1.8 MG, QD, SUBCUTANEOUS 0.6 MG, QD, SUBCUTANEOUS
     Route: 058
     Dates: start: 20110401, end: 20110603
  8. VICTOZA [Suspect]
     Indication: OBESITY
     Dosage: 1.8 MG, QD, SUBCUTANEOUS 0.6 MG, QD, SUBCUTANEOUS
     Route: 058
     Dates: start: 20110401, end: 20110603
  9. VICTOZA [Suspect]
     Indication: TYPE 2 DIABETES MELLITUS
     Dosage: 1.8 MG, QD, SUBCUTANEOUS 0.6 MG, QD, SUBCUTANEOUS
     Route: 058
     Dates: start: 20110913, end: 20110922
  10. VICTOZA [Suspect]
     Indication: OBESITY
     Dosage: 1.8 MG, QD, SUBCUTANEOUS 0.6 MG, QD, SUBCUTANEOUS
     Route: 058
     Dates: start: 20110913, end: 20110922
  11. METFORMIN HCL [Concomitant]
  12. NITROGLYCERIN [Concomitant]
  13. LEVOTHYROXINE SODIUM [Concomitant]
  14. CARVEDILOL [Concomitant]
  15. PROMETHAZINE HCL [Concomitant]
  16. OMEPRAZOLE [Concomitant]
  17. LISINOPRIL [Concomitant]

REACTIONS (1)
  - PANCREATITIS ACUTE [None]
